FAERS Safety Report 5072422-X (Version None)
Quarter: 2006Q3

REPORT INFORMATION
  Report Type: 
  Country: None (occurrence: None)
  Receive Date: 20060801
  Receipt Date: 20060719
  Transmission Date: 20061208
  Serious: Yes (Other)
  Sender: FDA-Public Use
  Company Number: 2006089996

PATIENT
  Age: 60 Year
  Sex: Female

DRUGS (1)
  1. VORICONAZOLE (VORICONAZOLE) [Suspect]

REACTIONS (2)
  - BLISTER [None]
  - ULCER [None]
